FAERS Safety Report 23765252 (Version 1)
Quarter: 2024Q2

REPORT INFORMATION
  Report Type: Spontaneous
  Country: US (occurrence: US)
  Receive Date: 20240420
  Receipt Date: 20240420
  Transmission Date: 20240716
  Serious: No
  Sender: FDA-Public Use
  Company Number: US-BAYER-2024A054620

PATIENT
  Age: 23 Year
  Sex: Female

DRUGS (1)
  1. SKYLA [Suspect]
     Active Substance: LEVONORGESTREL
     Dosage: 14?G/DAY
     Route: 015
     Dates: start: 20240411, end: 20240411

REACTIONS (2)
  - Post procedural discomfort [None]
  - Complication of device insertion [None]

NARRATIVE: CASE EVENT DATE: 20240411
